FAERS Safety Report 10016069 (Version 2)
Quarter: 2014Q1

REPORT INFORMATION
  Report Type: Spontaneous
  Country: US (occurrence: US)
  Receive Date: 20140317
  Receipt Date: 20140317
  Transmission Date: 20141002
  Serious: No
  Sender: FDA-Public Use
  Company Number: US-MYLANLABS-2013S1014293

PATIENT
  Sex: Female

DRUGS (4)
  1. CHLORTHALIDONE TABLETS, USP [Suspect]
     Indication: BLOOD PRESSURE INCREASED
     Route: 048
     Dates: start: 20130613, end: 20130626
  2. BENICAR [Concomitant]
     Indication: BLOOD PRESSURE INCREASED
     Route: 048
  3. TOPROL [Concomitant]
  4. CALAN /00014302/ [Concomitant]

REACTIONS (6)
  - Heart rate irregular [Recovered/Resolved]
  - Oedema [Recovered/Resolved]
  - Dizziness [Recovered/Resolved]
  - Asthenia [Recovered/Resolved]
  - Blood potassium decreased [Recovered/Resolved]
  - Mineral deficiency [Recovered/Resolved]
